FAERS Safety Report 10781301 (Version 1)
Quarter: 2015Q1

REPORT INFORMATION
  Report Type: Spontaneous
  Country: US (occurrence: US)
  Receive Date: 20150210
  Receipt Date: 20150210
  Transmission Date: 20150721
  Serious: No
  Sender: FDA-Public Use
  Company Number: US-GLAXOSMITHKLINE-A1074396A

PATIENT

DRUGS (3)
  1. LETAIRIS [Concomitant]
     Active Substance: AMBRISENTAN
  2. COUMADIN [Concomitant]
     Active Substance: WARFARIN SODIUM
  3. FLOLAN [Suspect]
     Active Substance: EPOPROSTENOL SODIUM
     Indication: PULMONARY ARTERIAL HYPERTENSION
     Dosage: 40.75 NG/KG/MIN, VIAL STRENGTH 1.5, 60,000 NG/ML CONCENTRATION, PUMP RATE 80 ML/DAY
     Route: 042
     Dates: start: 20010803

REACTIONS (1)
  - Infusion site haemorrhage [Unknown]
